FAERS Safety Report 5729129-2 (Version None)
Quarter: 2008Q2

REPORT INFORMATION
  Report Type: 
  Country: None (occurrence: None)
  Receive Date: 20080505
  Receipt Date: 20080505
  Transmission Date: 20081010
  Serious: Yes (Other)
  Sender: FDA-Public Use
  Company Number: None

PATIENT
  Age: 56 Year
  Sex: Female

DRUGS (2)
  1. LACTULOSE [Suspect]
     Indication: CONSTIPATION
     Dosage: 3ML QD
     Dates: start: 20050101
  2. LACTULOSE [Suspect]
     Indication: CONSTIPATION
     Dosage: 3ML QD
     Dates: start: 20060101

REACTIONS (1)
  - NAUSEA [None]
